FAERS Safety Report 13687097 (Version 1)
Quarter: 2017Q2

REPORT INFORMATION
  Report Type: Spontaneous
  Country: US (occurrence: US)
  Receive Date: 20170623
  Receipt Date: 20170623
  Transmission Date: 20170830
  Serious: Yes (Other)
  Sender: FDA-Public Use
  Company Number: US-MALLINCKRODT-T201702521

PATIENT
  Age: 57 Year
  Sex: Male
  Weight: 60 kg

DRUGS (4)
  1. GAS-X [Concomitant]
     Active Substance: DIMETHICONE
     Dosage: PRN
  2. HYDROCODONE/ACETAMINOPHEN [Suspect]
     Active Substance: ACETAMINOPHEN\HYDROCODONE
     Indication: PAIN
     Dosage: 1 DF, Q6H
     Route: 048
     Dates: start: 201704, end: 20170521
  3. IBUPROFEN. [Concomitant]
     Active Substance: IBUPROFEN
     Indication: PAIN
     Dosage: 800 MG, PRN
     Dates: start: 201704, end: 20170521
  4. SUTENT [Suspect]
     Active Substance: SUNITINIB MALATE
     Indication: RENAL CANCER
     Dosage: 50 MG, QD
     Route: 065
     Dates: start: 20170516

REACTIONS (7)
  - Dyspnoea [Not Recovered/Not Resolved]
  - Hepatic cyst [Unknown]
  - Drug ineffective [Recovered/Resolved]
  - Neck mass [Not Recovered/Not Resolved]
  - Lymphadenopathy [Not Recovered/Not Resolved]
  - Limb mass [Not Recovered/Not Resolved]
  - Adrenal mass [Unknown]

NARRATIVE: CASE EVENT DATE: 201704
